FAERS Safety Report 24444027 (Version 2)
Quarter: 2024Q4

REPORT INFORMATION
  Report Type: Report from Study
  Country: US (occurrence: US)
  Receive Date: 20241016
  Receipt Date: 20241017
  Transmission Date: 20250114
  Serious: No
  Sender: ROCHE
  Company Number: US-ROCHE-2677437

PATIENT
  Age: 46 Year
  Sex: Female

DRUGS (5)
  1. RITUXAN [Suspect]
     Active Substance: RITUXIMAB
     Indication: Neuromyelitis optica spectrum disorder
     Route: 041
     Dates: start: 20180625
  2. RITUXAN [Suspect]
     Active Substance: RITUXIMAB
     Dosage: ONGOING: NO
     Route: 042
     Dates: start: 20180710
  3. ENSPRYNG [Suspect]
     Active Substance: SATRALIZUMAB-MWGE
     Indication: Neuromyelitis optica spectrum disorder
     Route: 058
  4. ENSPRYNG [Suspect]
     Active Substance: SATRALIZUMAB-MWGE
  5. ENSPRYNG [Suspect]
     Active Substance: SATRALIZUMAB-MWGE

REACTIONS (2)
  - Off label use [Unknown]
  - No adverse event [Unknown]
